FAERS Safety Report 6391397-4 (Version None)
Quarter: 2009Q4

REPORT INFORMATION
  Report Type: 
  Country: None (occurrence: None)
  Receive Date: 20091007
  Receipt Date: 20090923
  Transmission Date: 20100525
  Serious: Yes (Other)
  Sender: FDA-Public Use
  Company Number: DE-PFIZER INC-2009272694

PATIENT
  Age: 45 Year

DRUGS (3)
  1. DEPO-CLINOVIR [Suspect]
     Indication: CONTRACEPTION
     Dosage: 1 INJECTION, EVERY 3 MONTHS
     Route: 030
     Dates: start: 19840101
  2. DEPO-CLINOVIR [Suspect]
     Indication: DYSMENORRHOEA
  3. BISOPROLOL [Concomitant]
     Indication: HYPERTENSION
     Dosage: 2.5 MG, 1X/DAY
     Route: 048
     Dates: start: 20040101

REACTIONS (6)
  - ALOPECIA [None]
  - AMENORRHOEA [None]
  - BREAST PAIN [None]
  - HYPERTENSION [None]
  - OVARIAN CYST [None]
  - UTERINE LEIOMYOMA [None]
